FAERS Safety Report 6124315-4 (Version None)
Quarter: 2009Q1

REPORT INFORMATION
  Report Type: 
  Country: None (occurrence: None)
  Receive Date: 20090318
  Receipt Date: 20090318
  Transmission Date: 20090719
  Serious: No
  Sender: FDA-Public Use
  Company Number: None

PATIENT
  Age: 44 Year
  Sex: Female
  Weight: 77.1115 kg

DRUGS (1)
  1. ZOCOR [Suspect]
     Indication: BLOOD TRIGLYCERIDES
     Dosage: 40 MG 1 AT BEDTIME PO
     Route: 048
     Dates: start: 20090220, end: 20090315

REACTIONS (7)
  - ASTHENIA [None]
  - BLISTER [None]
  - CHROMATURIA [None]
  - FATIGUE [None]
  - INCREASED TENDENCY TO BRUISE [None]
  - RASH [None]
  - ULCER [None]
